FAERS Safety Report 11861079 (Version 6)
Quarter: 2016Q1

REPORT INFORMATION
  Report Type: Report from Study
  Country: TR (occurrence: TR)
  Receive Date: 20151222
  Receipt Date: 20160325
  Transmission Date: 20160526
  Serious: Yes (Hospitalization)
  Sender: FDA-Public Use
  Company Number: TR-ABBVIE-15P-161-1523172-00

PATIENT
  Age: 40 Year
  Sex: Male
  Weight: 90 kg

DRUGS (4)
  1. CYMBALTA [Concomitant]
     Active Substance: DULOXETINE HYDROCHLORIDE
     Indication: DEPRESSION
     Route: 048
     Dates: start: 2014
  2. DUODOPA [Suspect]
     Active Substance: CARBIDOPA\LEVODOPA
     Indication: PARKINSON^S DISEASE
     Dosage: MORNING DOSE: 6.7 ML, CONTINUOUS DOSE: 4.3 ML, EXTRA DOSE: 1.5 ML
     Route: 050
     Dates: start: 20150428
  3. MADOPAR HBS [Concomitant]
     Active Substance: BENSERAZIDE HYDROCHLORIDE\LEVODOPA
     Indication: PARKINSON^S DISEASE
     Dosage: 1X2
     Route: 048
     Dates: start: 2003
  4. RIVOTRIL [Concomitant]
     Active Substance: CLONAZEPAM
     Indication: PARKINSON^S DISEASE
     Route: 048
     Dates: start: 2013

REACTIONS (6)
  - Cystitis [Recovered/Resolved]
  - Bladder cancer [Recovering/Resolving]
  - Haematuria [Recovering/Resolving]
  - Urethral stenosis [Recovering/Resolving]
  - Yellow skin [Recovered/Resolved]
  - Benign prostatic hyperplasia [Recovering/Resolving]

NARRATIVE: CASE EVENT DATE: 20151126
